FAERS Safety Report 9966394 (Version 2)
Quarter: 2014Q1

REPORT INFORMATION
  Report Type: Report from Study
  Country: US (occurrence: US)
  Receive Date: 20140305
  Receipt Date: 20140305
  Transmission Date: 20141002
  Serious: No
  Sender: FDA-Public Use
  Company Number: US-ABBVIE-13P-163-1093475-00

PATIENT
  Age: 69 Year
  Sex: Female

DRUGS (13)
  1. HUMIRA [Suspect]
     Indication: PSORIASIS
     Route: 058
     Dates: start: 20130323, end: 20130323
  2. HUMIRA [Suspect]
     Route: 058
     Dates: start: 20130330, end: 20130330
  3. HUMIRA [Suspect]
     Route: 058
  4. LANTUS [Concomitant]
     Indication: DIABETES MELLITUS
     Dosage: 50 UNITS IN AM, 45 UNITS PM
  5. LANTUS [Concomitant]
     Dosage: 55 UNITS IN THE AM AND 50 UNITS AT NIGHT
  6. HUMALOG [Concomitant]
     Indication: DIABETES MELLITUS
  7. GABAPENTIN [Concomitant]
     Indication: NERVE INJURY
  8. LOSARTAN [Concomitant]
     Indication: PRODUCT USED FOR UNKNOWN INDICATION
  9. POTASSIUM [Concomitant]
     Indication: PRODUCT USED FOR UNKNOWN INDICATION
  10. OMEPRAZOLE [Concomitant]
     Indication: GASTROOESOPHAGEAL REFLUX DISEASE
  11. SIMVASTATIN [Concomitant]
     Indication: BLOOD CHOLESTEROL INCREASED
  12. BABY ASPIRIN [Concomitant]
     Indication: PRODUCT USED FOR UNKNOWN INDICATION
  13. CLARITIN [Concomitant]
     Indication: SEASONAL ALLERGY

REACTIONS (12)
  - VIIth nerve paralysis [Not Recovered/Not Resolved]
  - Injection site pain [Not Recovered/Not Resolved]
  - Viral infection [Not Recovered/Not Resolved]
  - Blood glucose increased [Recovering/Resolving]
  - Injection site pain [Unknown]
  - Injection site pain [Unknown]
  - Pyrexia [Recovered/Resolved]
  - Local swelling [Recovered/Resolved]
  - Neuralgia [Recovering/Resolving]
  - Psoriasis [Not Recovered/Not Resolved]
  - Pruritus [Unknown]
  - Nausea [Unknown]
